FAERS Safety Report 18362895 (Version 1)
Quarter: 2020Q4

REPORT INFORMATION
  Report Type: Not Available
  Country: US (occurrence: US)
  Receive Date: 20201008
  Receipt Date: 20201008
  Transmission Date: 20210114
  Serious: Yes (Other)
  Sender: FDA-Public Use
  Company Number: US-NEUROCRINE BIOSCIENCES INC.-2020NBI03554

PATIENT
  Age: 67 Year
  Sex: Male

DRUGS (11)
  1. METOPROLOL. [Concomitant]
     Active Substance: METOPROLOL
  2. LEVOTHYROXINE. [Concomitant]
     Active Substance: LEVOTHYROXINE
  3. METHOCARBAMOL. [Concomitant]
     Active Substance: METHOCARBAMOL
  4. ATORVASTATIN [Concomitant]
     Active Substance: ATORVASTATIN
  5. VERAPAMIL [Concomitant]
     Active Substance: VERAPAMIL HYDROCHLORIDE
  6. WELLBUTRIN [Concomitant]
     Active Substance: BUPROPION HYDROCHLORIDE
  7. CEFUROXIME. [Concomitant]
     Active Substance: CEFUROXIME
  8. INGREZZA [Suspect]
     Active Substance: VALBENAZINE
     Indication: TARDIVE DYSKINESIA
     Route: 048
     Dates: start: 20190611
  9. CLONAZEPAM. [Concomitant]
     Active Substance: CLONAZEPAM
  10. FERROUS SULFATE. [Concomitant]
     Active Substance: FERROUS SULFATE
  11. HYDROCHLOROTHIAZIDE. [Concomitant]
     Active Substance: HYDROCHLOROTHIAZIDE

REACTIONS (3)
  - Fall [Recovered/Resolved]
  - Rib fracture [Unknown]
  - Limb injury [Unknown]
